FAERS Safety Report 5344130-9 (Version None)
Quarter: 2007Q2

REPORT INFORMATION
  Report Type: 
  Country: None (occurrence: None)
  Receive Date: 20070531
  Receipt Date: 20070531
  Transmission Date: 20071010
  Serious: No
  Sender: FDA-Public Use
  Company Number: None

PATIENT
  Age: 46 Year
  Sex: Male
  Weight: 94.8018 kg

DRUGS (2)
  1. CIALIS [Suspect]
     Indication: ASTHENIA
     Dates: start: 20060320, end: 20070502
  2. CIALIS [Suspect]
     Indication: STRESS
     Dates: start: 20060320, end: 20070502

REACTIONS (1)
  - HYPOAESTHESIA [None]
